FAERS Safety Report 6910514-8 (Version None)
Quarter: 2010Q3

REPORT INFORMATION
  Report Type: 
  Country: None (occurrence: None)
  Receive Date: 20100806
  Receipt Date: 20100727
  Transmission Date: 20110219
  Serious: Yes (Hospitalization)
  Sender: FDA-Public Use
  Company Number: PHHY2010SE49695

PATIENT
  Sex: Female

DRUGS (4)
  1. RITALIN LA [Suspect]
     Indication: ATTENTION DEFICIT/HYPERACTIVITY DISORDER
     Dosage: 60 MG DAILY
     Dates: start: 20060522
  2. RITALIN LA [Suspect]
     Dosage: 70 MG DAILY
  3. RITALIN LA [Suspect]
     Dosage: 30 MG, BID
     Dates: start: 20100202
  4. ALOE VERA [Concomitant]

REACTIONS (3)
  - BILIARY COLIC [None]
  - FAECES DISCOLOURED [None]
  - LIVER FUNCTION TEST ABNORMAL [None]
